FAERS Safety Report 16683062 (Version 1)
Quarter: 2019Q3

REPORT INFORMATION
  Report Type: Spontaneous
  Country: US (occurrence: US)
  Receive Date: 20190808
  Receipt Date: 20190808
  Transmission Date: 20191004
  Serious: No
  Sender: FDA-Public Use
  Company Number: US-TEVA-2019-US-1087422

PATIENT
  Sex: Female

DRUGS (2)
  1. ACTAVIS CLONAZEPAM [Suspect]
     Active Substance: CLONAZEPAM
     Indication: ANXIETY
     Dosage: 1 1/2 TABLETS TWICE A DAY
     Dates: start: 201810
  2. ACTAVIS CLONAZEPAM [Suspect]
     Active Substance: CLONAZEPAM
     Dosage: 1/2 TABLETS TWICE A DAY

REACTIONS (4)
  - Product substitution issue [Unknown]
  - Psychiatric symptom [Unknown]
  - Panic attack [Unknown]
  - Drug ineffective [Unknown]
